FAERS Safety Report 11197634 (Version 7)
Quarter: 2016Q4

REPORT INFORMATION
  Report Type: Report from Study
  Country: US (occurrence: US)
  Receive Date: 20150617
  Receipt Date: 20161123
  Transmission Date: 20170206
  Serious: Yes (Hospitalization, Other)
  Sender: FDA-Public Use
  Company Number: US-CELGENEUS-USA-2015050419

PATIENT
  Age: 65 Year
  Sex: Female
  Weight: 106.69 kg

DRUGS (4)
  1. POMALYST [Suspect]
     Active Substance: POMALIDOMIDE
     Indication: PLASMA CELL MYELOMA
     Route: 048
     Dates: start: 20150130, end: 20150130
  2. POMALYST [Suspect]
     Active Substance: POMALIDOMIDE
     Route: 048
     Dates: start: 20150330, end: 20151208
  3. POMALYST [Suspect]
     Active Substance: POMALIDOMIDE
     Route: 041
     Dates: start: 20150130
  4. CARFILZOMIB [Suspect]
     Active Substance: CARFILZOMIB
     Indication: PLASMA CELL MYELOMA
     Dosage: ON DAYS 1,2,8,9,15,16 EVERY 28 DAYS
     Route: 041
     Dates: start: 20141222, end: 20141230

REACTIONS (3)
  - Plasma cell myeloma [Unknown]
  - Femur fracture [Recovered/Resolved]
  - Atrial flutter [Recovered/Resolved]

NARRATIVE: CASE EVENT DATE: 20150207
